FAERS Safety Report 4694897-8 (Version None)
Quarter: 2005Q2

REPORT INFORMATION
  Report Type: 
  Country: None (occurrence: None)
  Receive Date: 20050617
  Receipt Date: 20050607
  Transmission Date: 20051028
  Serious: Yes (Hospitalization, Other)
  Sender: FDA-Public Use
  Company Number: 2005086106

PATIENT
  Age: 33 Year
  Sex: Female
  Weight: 86.1834 kg

DRUGS (1)
  1. DEPO-PROVERA [Suspect]
     Indication: ILL-DEFINED DISORDER
     Dosage: (150 MG)
     Dates: start: 20040601

REACTIONS (2)
  - FIBROMATOSIS [None]
  - THROMBOSIS [None]
